FAERS Safety Report 24712622 (Version 1)
Quarter: 2024Q4

REPORT INFORMATION
  Report Type: Spontaneous
  Country: US (occurrence: None)
  Receive Date: 20241207
  Receipt Date: 20241207
  Transmission Date: 20250115
  Serious: Yes (Disabling)
  Sender: Public
  Company Number: None

PATIENT
  Age: 41 Year
  Sex: Female
  Weight: 54.9 kg

DRUGS (2)
  1. DIAZEPAM [Suspect]
     Active Substance: DIAZEPAM
     Indication: Mental disorder
     Dosage: 1 TABLET 3 TIMES  DAY ORAL
     Route: 048
     Dates: start: 20220201, end: 20240110
  2. BEYAZ [Concomitant]
     Active Substance: DROSPIRENONE\ETHINYL ESTRADIOL\LEVOMEFOLATE CALCIUM

REACTIONS (21)
  - Product communication issue [None]
  - Paranoia [None]
  - Palpitations [None]
  - Insomnia [None]
  - Cognitive disorder [None]
  - Agoraphobia [None]
  - Tinnitus [None]
  - Tremor [None]
  - Headache [None]
  - Hypoaesthesia [None]
  - Hypoaesthesia [None]
  - Hyperhidrosis [None]
  - Abdominal discomfort [None]
  - Confusional state [None]
  - Visual impairment [None]
  - Auditory disorder [None]
  - Dizziness [None]
  - Delirium [None]
  - Anxiety [None]
  - Anhedonia [None]
  - Neuralgia [None]

NARRATIVE: CASE EVENT DATE: 20230601
